FAERS Safety Report 4614375-1 (Version None)
Quarter: 2005Q2

REPORT INFORMATION
  Report Type: 
  Country: None (occurrence: None)
  Receive Date: 20050311
  Receipt Date: 20040105
  Transmission Date: 20051028
  Serious: No
  Sender: FDA-Public Use
  Company Number: 2004-00263

PATIENT
  Age: 75 Year
  Sex: Female
  Weight: 55.8 kg

DRUGS (11)
  1. VELCADE [Suspect]
     Indication: MULTIPLE MYELOMA
     Dosage: 2.04 MG, INTRAVENOUS
     Route: 042
     Dates: start: 20040525
  2. PREDNISONE [Concomitant]
  3. PREMARIN [Concomitant]
  4. PROPRANOLOL [Concomitant]
  5. PREVACID [Concomitant]
  6. DIAZEPAM [Concomitant]
  7. TYLENOL W/ CODEINE [Concomitant]
  8. MOIBC (MELOXICAM) [Concomitant]
  9. ZOMETA [Concomitant]
  10. PROCRIT [Concomitant]
  11. QUININE SULFATE [Concomitant]

REACTIONS (2)
  - BONE PAIN [None]
  - RASH [None]
